FAERS Safety Report 13535172 (Version 4)
Quarter: 2018Q4

REPORT INFORMATION
  Report Type: Spontaneous
  Country: US (occurrence: US)
  Receive Date: 20170511
  Receipt Date: 20181026
  Transmission Date: 20190204
  Serious: Yes (Hospitalization)
  Sender: FDA-Public Use
  Company Number: US-VIFOR (INTERNATIONAL) INC.-VIT-2017-00733

PATIENT
  Age: 66 Year
  Sex: Female

DRUGS (24)
  1. COZAAR [Concomitant]
     Active Substance: LOSARTAN POTASSIUM
  2. HYDROCHLOROTHIAZID [Concomitant]
     Active Substance: HYDROCHLOROTHIAZIDE
  3. CENTRUM [Concomitant]
     Active Substance: VITAMINS
  4. CALTRATE WITH VITAMIN D [Concomitant]
     Active Substance: CALCIUM CARBONATE\CHOLECALCIFEROL
     Dosage: 300-800
  5. CENTRUM SILVER [Concomitant]
     Active Substance: MINERALS\VITAMINS
  6. VELTASSA [Suspect]
     Active Substance: PATIROMER
     Indication: HYPERKALAEMIA
     Route: 048
     Dates: start: 20160812
  7. VELTASSA [Suspect]
     Active Substance: PATIROMER
     Indication: ESSENTIAL HYPERTENSION
     Dosage: 1 PACKET
     Route: 048
     Dates: start: 20160810
  8. VALSARTAN. [Concomitant]
     Active Substance: VALSARTAN
  9. VITAMIN D [Concomitant]
     Active Substance: CHOLECALCIFEROL
  10. ASPIRIN. [Concomitant]
     Active Substance: ASPIRIN
  11. COLCRYS [Concomitant]
     Active Substance: COLCHICINE
  12. WARFARIN [Concomitant]
     Active Substance: WARFARIN
  13. VELTASSA [Suspect]
     Active Substance: PATIROMER
     Route: 048
     Dates: start: 20160811
  14. NOVOLOG [Concomitant]
     Active Substance: INSULIN ASPART
  15. LASIX [Concomitant]
     Active Substance: FUROSEMIDE
  16. ZETIA [Concomitant]
     Active Substance: EZETIMIBE
  17. SINGULAIR [Concomitant]
     Active Substance: MONTELUKAST SODIUM
  18. CARVEDILOL. [Concomitant]
     Active Substance: CARVEDILOL
  19. TRAMADOL. [Concomitant]
     Active Substance: TRAMADOL
  20. COREG [Concomitant]
     Active Substance: CARVEDILOL
  21. TRESIBA [Concomitant]
     Active Substance: INSULIN DEGLUDEC
  22. PROAIR HFA [Concomitant]
     Active Substance: ALBUTEROL SULFATE
  23. ALBUTEROL. [Concomitant]
     Active Substance: ALBUTEROL
  24. VITAMIN E [Concomitant]
     Active Substance: .ALPHA.-TOCOPHEROL

REACTIONS (7)
  - Thrombosis [Not Recovered/Not Resolved]
  - Dyspnoea [Not Recovered/Not Resolved]
  - Blister [Not Recovered/Not Resolved]
  - Lung disorder [Not Recovered/Not Resolved]
  - Peripheral swelling [Not Recovered/Not Resolved]
  - Constipation [Not Recovered/Not Resolved]
  - Urinary tract infection [Not Recovered/Not Resolved]

NARRATIVE: CASE EVENT DATE: 2016
